FAERS Safety Report 9846505 (Version 1)
Quarter: 2014Q1

REPORT INFORMATION
  Report Type: Spontaneous
  Country: GB (occurrence: None)
  Receive Date: 20140117
  Receipt Date: 20140117
  Transmission Date: 20141002
  Serious: Yes (Hospitalization)
  Sender: FDA-Public Use
  Company Number: AUR-APL-2014-00298

PATIENT
  Age: 88 Year
  Sex: Female

DRUGS (11)
  1. TERBINAFINE (TERBINAFINE) [Suspect]
     Indication: FUNGAL INFECTION
     Route: 048
     Dates: start: 20131219
  2. ASPIRIN (ACETYLSALICYLIC ACID) [Concomitant]
  3. DIPROBASE (DIPROBASE) [Concomitant]
  4. E45 (AKWA TEARS) [Concomitant]
  5. ENALAPRIL (ENALAPRIL) [Concomitant]
  6. FLUCLOXACILLIN ( FLUCLOXACILLIN) [Concomitant]
  7. METFORMIN (METFORMIN) [Concomitant]
  8. MICONAZOLE (MICONAZOLE) [Concomitant]
  9. PARACETAMOL (PARACETAMOL) [Concomitant]
  10. PERMETHRIN (PERMETHRIN) [Concomitant]
  11. SIMVASTATIN (SIMVASTATIN) [Concomitant]

REACTIONS (4)
  - Rash [None]
  - Excoriation [None]
  - Dry skin [None]
  - Erythema [None]
